FAERS Safety Report 5637667-6 (Version None)
Quarter: 2008Q1

REPORT INFORMATION
  Report Type: 
  Country: None (occurrence: None)
  Receive Date: 20080219
  Receipt Date: 20080204
  Transmission Date: 20080703
  Serious: Yes (Death)
  Sender: FDA-Public Use
  Company Number: 2008-01254

PATIENT
  Age: 67 Year
  Sex: Male

DRUGS (5)
  1. AMLODIPINE BESYLATE [Suspect]
  2. BENAZEPRIL HYDROCHLORIDE [Suspect]
  3. MICROZIDE [Suspect]
  4. CITALOPRAM HYDROBROMIDE [Suspect]
  5. ETHANOL(ETHANOL) [Suspect]

REACTIONS (1)
  - DEATH [None]
